FAERS Safety Report 12452910 (Version 1)
Quarter: 2016Q2

REPORT INFORMATION
  Report Type: Spontaneous
  Country: US (occurrence: US)
  Receive Date: 20160609
  Receipt Date: 20160609
  Transmission Date: 20160815
  Serious: No
  Sender: FDA-Public Use
  Company Number: US-PFIZER INC-2016261436

PATIENT
  Age: 74 Year
  Sex: Female

DRUGS (3)
  1. AMMONIA. [Suspect]
     Active Substance: AMMONIA
     Dosage: UNK
  2. PEROXIDE [Suspect]
     Active Substance: HYDROGEN PEROXIDE
     Indication: ORAL PAIN
     Dosage: UNK
  3. MORPHINE SULFATE. [Suspect]
     Active Substance: MORPHINE SULFATE
     Dosage: UNK

REACTIONS (1)
  - Drug hypersensitivity [Unknown]
